FAERS Safety Report 16711206 (Version 1)
Quarter: 2019Q3

REPORT INFORMATION
  Report Type: Spontaneous
  Country: US (occurrence: US)
  Receive Date: 20190816
  Receipt Date: 20190816
  Transmission Date: 20191004
  Serious: No
  Sender: FDA-Public Use
  Company Number: US-ASTRAZENECA-2019SE85803

PATIENT
  Sex: Female
  Weight: 95.3 kg

DRUGS (2)
  1. BYDUREON [Suspect]
     Active Substance: EXENATIDE
     Indication: TYPE 2 DIABETES MELLITUS
     Route: 058
  2. BYDUREON BCISE [Suspect]
     Active Substance: EXENATIDE
     Indication: TYPE 2 DIABETES MELLITUS
     Route: 058

REACTIONS (6)
  - Wrong technique in device usage process [Recovered/Resolved]
  - Device defective [Unknown]
  - Product leakage [Unknown]
  - Injection site haemorrhage [Recovered/Resolved]
  - Device issue [Unknown]
  - Product dispensing issue [Unknown]
